FAERS Safety Report 9971944 (Version 1)
Quarter: 2014Q1

REPORT INFORMATION
  Report Type: Spontaneous
  Country: US (occurrence: None)
  Receive Date: 20140305
  Receipt Date: 20140305
  Transmission Date: 20141002
  Serious: Yes (Disabling)
  Sender: FDA-Public Use
  Company Number: None

PATIENT
  Age: 50 Year
  Sex: Female

DRUGS (1)
  1. METOPROLOL [Suspect]
     Indication: BLOOD PRESSURE
     Route: 048

REACTIONS (7)
  - Fall [None]
  - Gait disturbance [None]
  - Hypoaesthesia [None]
  - Musculoskeletal stiffness [None]
  - Dry mouth [None]
  - Musculoskeletal stiffness [None]
  - Hypoaesthesia [None]
